FAERS Safety Report 12928063 (Version 1)
Quarter: 2016Q4

REPORT INFORMATION
  Report Type: Report from Study
  Country: NZ (occurrence: NZ)
  Receive Date: 20161110
  Receipt Date: 20161110
  Transmission Date: 20170207
  Serious: Yes (Hospitalization)
  Sender: FDA-Public Use
  Company Number: NZ-ROCHE-1851218

PATIENT

DRUGS (3)
  1. 5-FLUOROURACIL [Suspect]
     Active Substance: FLUOROURACIL
     Dosage: ON DAYS 1-5 OF WEEK 1 AND WEEK 5 OF RADIATION TREATMENT.
     Route: 042
  2. CAPECITABINE. [Suspect]
     Active Substance: CAPECITABINE
     Indication: RECTAL CANCER
     Route: 065
  3. 5-FLUOROURACIL [Suspect]
     Active Substance: FLUOROURACIL
     Indication: RECTAL CANCER
     Route: 042

REACTIONS (2)
  - Urinary bladder toxicity [Unknown]
  - Gastrointestinal toxicity [Unknown]
